FAERS Safety Report 9343824 (Version 1)
Quarter: 2013Q2

REPORT INFORMATION
  Report Type: Spontaneous
  Country: NL (occurrence: None)
  Receive Date: 20130610
  Receipt Date: 20130610
  Transmission Date: 20140414
  Serious: Yes (Other)
  Sender: FDA-Public Use
  Company Number: SYM-2013-04672

PATIENT
  Age: 38 Year
  Sex: Female

DRUGS (2)
  1. FLAGYL [Suspect]
     Indication: PELVIC INFLAMMATORY DISEASE
     Dosage: 3 DOSAGE FORM, DAILY VAGINAL
     Route: 048
     Dates: start: 20130327
  2. OFLOXACIN [Suspect]
     Indication: PELVIC INFLAMMATORY DISEASE

REACTIONS (7)
  - Hallucination [None]
  - Photopsia [None]
  - Metamorphopsia [None]
  - Palpitations [None]
  - Myoclonus [None]
  - Hypoaesthesia [None]
  - Drug interaction [None]
